FAERS Safety Report 11295858 (Version 1)
Quarter: 2015Q3

REPORT INFORMATION
  Report Type: Spontaneous
  Country: US (occurrence: US)
  Receive Date: 20150722
  Receipt Date: 20150722
  Transmission Date: 20151125
  Serious: No
  Sender: FDA-Public Use
  Company Number: US-ELI_LILLY_AND_COMPANY-US200908004408

PATIENT
  Sex: Female

DRUGS (2)
  1. VITAMIN D [Concomitant]
     Active Substance: CHOLECALCIFEROL
     Dosage: UNK, UNKNOWN
     Route: 065
  2. EVISTA [Suspect]
     Active Substance: RALOXIFENE HYDROCHLORIDE
     Dosage: UNK, UNKNOWN
     Route: 065
     Dates: start: 20090501

REACTIONS (9)
  - Blood pressure decreased [Unknown]
  - Headache [Unknown]
  - Vision blurred [Unknown]
  - Laryngeal disorder [Unknown]
  - Dizziness [Unknown]
  - Musculoskeletal discomfort [Unknown]
  - Dysphagia [Unknown]
  - Feeling abnormal [Unknown]
  - Hot flush [Unknown]
